FAERS Safety Report 4651628-5 (Version None)
Quarter: 2005Q2

REPORT INFORMATION
  Report Type: 
  Country: None (occurrence: None)
  Receive Date: 20050404
  Receipt Date: 20041105
  Transmission Date: 20051028
  Serious: No
  Sender: FDA-Public Use
  Company Number: USA041183319

PATIENT
  Sex: Female

DRUGS (8)
  1. CYMBALTA [Suspect]
     Indication: DEPRESSION
     Dosage: 60 MG DAY
     Dates: start: 20040901
  2. METHADONE [Concomitant]
  3. ACIPHEX [Concomitant]
  4. ZOCOR (SIMVASTATIN RATIOPHARM) [Concomitant]
  5. ZETIA [Concomitant]
  6. SEROQUEL [Concomitant]
  7. HYDRAZINE [Concomitant]
  8. ZOLOFT [Concomitant]

REACTIONS (1)
  - MUSCLE TWITCHING [None]
